FAERS Safety Report 20685001 (Version 1)
Quarter: 2022Q2

REPORT INFORMATION
  Report Type: Spontaneous
  Country: US (occurrence: US)
  Receive Date: 20220407
  Receipt Date: 20220407
  Transmission Date: 20220720
  Serious: No
  Sender: FDA-Public Use
  Company Number: US-PFIZER INC-202101023629

PATIENT
  Age: 71 Year
  Sex: Female

DRUGS (1)
  1. IBRANCE [Suspect]
     Active Substance: PALBOCICLIB
     Indication: Breast cancer female
     Dosage: 125 MG QD (EVERY DAY) X 21 DAYS)
     Dates: start: 20210615

REACTIONS (3)
  - Diarrhoea [Unknown]
  - Dizziness [Unknown]
  - Product dose omission issue [Unknown]
